FAERS Safety Report 12209587 (Version 1)
Quarter: 2016Q1

REPORT INFORMATION
  Report Type: Spontaneous
  Country: CN (occurrence: CN)
  Receive Date: 20160325
  Receipt Date: 20160325
  Transmission Date: 20160526
  Serious: Yes (Hospitalization, Other)
  Sender: FDA-Public Use
  Company Number: CN-ROCHE-1730716

PATIENT
  Age: 65 Year
  Sex: Female

DRUGS (2)
  1. CELLCEPT [Suspect]
     Active Substance: MYCOPHENOLATE MOFETIL\MYCOPHENOLATE MOFETIL HYDROCHLORIDE
     Route: 048
  2. CELLCEPT [Suspect]
     Active Substance: MYCOPHENOLATE MOFETIL\MYCOPHENOLATE MOFETIL HYDROCHLORIDE
     Indication: RENAL TRANSPLANT
     Dosage: (FORM STRENGTH: 250MG)
     Route: 048
     Dates: start: 20051123

REACTIONS (11)
  - Anaemia [Recovering/Resolving]
  - Ill-defined disorder [Unknown]
  - Fallopian tube cancer [Unknown]
  - Cerebral infarction [Unknown]
  - Blood urea increased [Unknown]
  - Protein urine present [Unknown]
  - Frequent bowel movements [Recovering/Resolving]
  - Lung infection [Recovered/Resolved]
  - Blood pressure fluctuation [Unknown]
  - Blood creatinine increased [Unknown]
  - Asthenia [Unknown]

NARRATIVE: CASE EVENT DATE: 2012
